FAERS Safety Report 6747611-6 (Version None)
Quarter: 2010Q2

REPORT INFORMATION
  Report Type: 
  Country: None (occurrence: None)
  Receive Date: 20100528
  Receipt Date: 20100517
  Transmission Date: 20101027
  Serious: Yes (Other)
  Sender: FDA-Public Use
  Company Number: PHHY2010FR32785

PATIENT
  Age: 81 Year
  Sex: Female

DRUGS (8)
  1. RASILEZ [Suspect]
     Dosage: 150 MG
     Dates: start: 20100329, end: 20100414
  2. SERMION [Concomitant]
  3. DITROPAN [Concomitant]
  4. PLAVIX [Concomitant]
  5. EZETIMIBE/SIMVASTATIN [Concomitant]
  6. ZYLORIC [Concomitant]
  7. PARIET [Concomitant]
  8. EFFERALGAN [Concomitant]

REACTIONS (3)
  - BLOOD CREATINE INCREASED [None]
  - GLOMERULAR VASCULAR DISORDER [None]
  - OEDEMA PERIPHERAL [None]
